FAERS Safety Report 7122102-1 (Version None)
Quarter: 2010Q4

REPORT INFORMATION
  Report Type: 
  Country: None (occurrence: None)
  Receive Date: 20101124
  Receipt Date: 20101115
  Transmission Date: 20110411
  Serious: Yes (Other)
  Sender: FDA-Public Use
  Company Number: PHHO2010FR10075

PATIENT
  Sex: Female
  Weight: 66 kg

DRUGS (8)
  1. AFINITOR [Suspect]
     Indication: BREAST CANCER METASTATIC
     Dosage: CODE NOT BROKEN
     Route: 048
     Dates: start: 20100416, end: 20100617
  2. BLINDED NO TREATMENT RECEIVED NOMED [Suspect]
     Indication: BREAST CANCER METASTATIC
     Dosage: CODE NOT BROKEN
     Route: 048
     Dates: start: 20100416, end: 20100617
  3. PLACEBO [Suspect]
     Indication: BREAST CANCER METASTATIC
     Dosage: CODE NOT BROKEN
     Route: 048
     Dates: start: 20100416, end: 20100617
  4. COMPARATOR PACLITAXEL [Suspect]
     Indication: BREAST CANCER METASTATIC
     Dosage: UNK
     Dates: start: 20100416
  5. TRASTUZUMAB [Concomitant]
  6. METHYLPREDNISOLONE [Concomitant]
  7. POLARAMINE [Concomitant]
  8. ONDANSETRON [Concomitant]

REACTIONS (4)
  - DYSPNOEA [None]
  - LUNG INFILTRATION [None]
  - PNEUMONITIS [None]
  - PYREXIA [None]
